FAERS Safety Report 10236510 (Version 1)
Quarter: 2014Q2

REPORT INFORMATION
  Report Type: Spontaneous
  Country: US (occurrence: US)
  Receive Date: 20140613
  Receipt Date: 20140613
  Transmission Date: 20141212
  Serious: No
  Sender: FDA-Public Use
  Company Number: US-PFIZER INC-2014158119

PATIENT
  Age: 69 Year
  Sex: Female

DRUGS (25)
  1. GLUCOTROL XL [Suspect]
     Dosage: UNK
  2. ZOLOFT [Suspect]
     Dosage: UNK
  3. IBUPROFEN [Suspect]
     Dosage: UNK
  4. ADVIL [Suspect]
     Dosage: UNK
  5. PRISTIQ [Suspect]
     Dosage: UNK
  6. METFORMIN HCL [Suspect]
     Dosage: UNK
  7. AMOXICILLIN [Suspect]
     Dosage: UNK
  8. PCE [Suspect]
     Dosage: UNK
  9. BIAXIN [Suspect]
     Dosage: UNK
  10. BENADRYL [Suspect]
     Dosage: UNK
  11. TYLENOL WITH CODEINE [Suspect]
     Dosage: UNK
  12. NOVOCAIN [Suspect]
     Dosage: UNK
  13. ACTOS [Suspect]
     Dosage: UNK
  14. CIPRO [Suspect]
  15. MACRODANTIN [Suspect]
     Dosage: UNK
  16. ALBUTEROL [Suspect]
     Dosage: UNK
  17. ELAVIL [Suspect]
     Dosage: UNK
  18. PROZAC [Suspect]
     Dosage: UNK
  19. LEXAPRO [Suspect]
     Dosage: UNK
  20. PAXIL [Suspect]
     Dosage: UNK
  21. LITHOBID [Suspect]
     Dosage: UNK
  22. REMERON [Suspect]
     Dosage: UNK
  23. RISPERDAL [Suspect]
     Dosage: UNK
  24. XYLOCAINE [Suspect]
     Dosage: UNK
  25. ST. JOHN^S WORT [Suspect]

REACTIONS (1)
  - Drug hypersensitivity [Unknown]
